FAERS Safety Report 6382907-1 (Version None)
Quarter: 2009Q3

REPORT INFORMATION
  Report Type: 
  Country: None (occurrence: None)
  Receive Date: 20090930
  Receipt Date: 20090918
  Transmission Date: 20100115
  Serious: Yes (Other)
  Sender: FDA-Public Use
  Company Number: PHEH2009US07428

PATIENT
  Sex: Female
  Weight: 88.707 kg

DRUGS (14)
  1. GLEEVEC [Suspect]
     Indication: GASTROINTESTINAL STROMAL TUMOUR
     Dosage: 400 MG, QD
     Route: 048
     Dates: start: 20030711
  2. GLEEVEC [Suspect]
     Dosage: 200 MG, BID
     Dates: start: 20050101
  3. NOVOLOG [Concomitant]
     Indication: DIABETES MELLITUS
     Dosage: 35 UNITS QAM, 27 UNITS QPM
     Route: 058
  4. IMODIUM [Concomitant]
     Dosage: 1 TAB, PRN
     Route: 048
  5. BENADRYL ^ACHE^ [Concomitant]
     Dosage: 25 MG, PRN
     Route: 048
  6. AMBIEN [Concomitant]
     Dosage: 2.5 MG, QHS, PRN
     Route: 048
     Dates: start: 20080611
  7. ATIVAN [Concomitant]
     Dosage: 2 MG, BID
     Route: 048
     Dates: start: 20060405
  8. NEURONTIN [Concomitant]
     Dosage: 100 MG, TID
     Route: 048
     Dates: start: 20060405
  9. ALLEGRA [Concomitant]
     Dosage: 180 MG, QD
     Route: 048
     Dates: start: 20070329
  10. NEXIUM [Concomitant]
     Indication: GASTROOESOPHAGEAL REFLUX DISEASE
     Dosage: 40 MG, BID
     Route: 048
     Dates: start: 20090129
  11. PHENERGAN ^AVENTIS PHARMA^ [Concomitant]
     Dosage: 25 MG, PRN
     Route: 054
     Dates: start: 20070330
  12. ADVIL [Concomitant]
     Dosage: UNK, PRN
     Route: 048
  13. HYDROCORTISONE CREAM (B.P.C.,B.N.F.) [Concomitant]
     Dosage: 2.5 %, PRN
     Dates: start: 20080715
  14. VANCOMYCIN [Concomitant]
     Indication: PROPHYLAXIS
     Dosage: UNK, UNK
     Dates: start: 20050101

REACTIONS (22)
  - ABDOMINAL DISTENSION [None]
  - ANGIOPATHY [None]
  - ASPARTATE AMINOTRANSFERASE INCREASED [None]
  - CONDITION AGGRAVATED [None]
  - DIABETES MELLITUS [None]
  - DIARRHOEA [None]
  - GASTROINTESTINAL DISORDER [None]
  - GASTROOESOPHAGEAL REFLUX DISEASE [None]
  - HAEMORRHOIDS [None]
  - MALIGNANT NEOPLASM PROGRESSION [None]
  - OSTEOPENIA [None]
  - OSTEOPOROSIS [None]
  - PAIN [None]
  - PHOTOSENSITIVITY REACTION [None]
  - PRURITUS [None]
  - RASH [None]
  - RECTAL HAEMORRHAGE [None]
  - SCLERAL DISORDER [None]
  - SKIN DISORDER [None]
  - SWELLING [None]
  - TREATMENT NONCOMPLIANCE [None]
  - WEIGHT INCREASED [None]
